FAERS Safety Report 4748713-6 (Version None)
Quarter: 2005Q3

REPORT INFORMATION
  Report Type: 
  Country: None (occurrence: None)
  Receive Date: 20050816
  Receipt Date: 20050713
  Transmission Date: 20060218
  Serious: Yes (Life-Threatening)
  Sender: FDA-Public Use
  Company Number: ALB/05/03/USA

PATIENT
  Age: 66 Year
  Sex: Female
  Weight: 79.6 kg

DRUGS (6)
  1. ALBUMIN (HUMAN) [Suspect]
     Indication: PREOPERATIVE CARE
     Dosage: 100 ML, ONCE, I.V.
     Route: 042
     Dates: start: 20050712, end: 20050712
  2. FUROSEMIDE [Concomitant]
  3. LEVOTHYROXINE SODIUM [Concomitant]
  4. METOPROLOL TARTRATE [Concomitant]
  5. POTASSIUM CHLORIDE [Concomitant]
  6. DIPHENHYDRAMINE HCL [Concomitant]

REACTIONS (1)
  - ANAPHYLACTIC REACTION [None]
